FAERS Safety Report 25524459 (Version 1)
Quarter: 2025Q3

REPORT INFORMATION
  Report Type: Spontaneous
  Country: US (occurrence: None)
  Receive Date: 20250704
  Receipt Date: 20250704
  Transmission Date: 20251021
  Serious: Yes (Other)
  Sender: FDA-CTU
  Company Number: None

PATIENT
  Age: 59 Year
  Sex: Female
  Weight: 89.55 kg

DRUGS (3)
  1. MOUNJARO [Suspect]
     Active Substance: TIRZEPATIDE
     Indication: Glycosylated haemoglobin increased
     Route: 050
     Dates: start: 20250614, end: 20250621
  2. MAGNESIUM [Concomitant]
     Active Substance: MAGNESIUM
  3. b12 [Concomitant]

REACTIONS (4)
  - Pain in extremity [None]
  - Spinal pain [None]
  - Paralysis [None]
  - Gait disturbance [None]

NARRATIVE: CASE EVENT DATE: 20250614
